FAERS Safety Report 9307134 (Version 2)
Quarter: 2013Q3

REPORT INFORMATION
  Report Type: Spontaneous
  Country: BR (occurrence: BR)
  Receive Date: 20130524
  Receipt Date: 20130719
  Transmission Date: 20140515
  Serious: Yes (Other)
  Sender: FDA-Public Use
  Company Number: BR-AMGEN-BRASP2012073048

PATIENT
  Age: 44 Year
  Sex: Male
  Weight: 81 kg

DRUGS (3)
  1. ENBREL [Suspect]
     Indication: ANKYLOSING SPONDYLITIS
     Dosage: 50 MG, ONCE WEEKLY
     Route: 058
     Dates: start: 20121019
  2. FAMOTIDINE [Concomitant]
     Indication: PAIN
     Dosage: UNK, AS NEEDED
     Dates: start: 2004
  3. INDOMETACIN [Concomitant]
     Indication: PAIN
     Dosage: UNK, AS NEEDED
     Dates: start: 2004

REACTIONS (7)
  - Nephrolithiasis [Unknown]
  - Musculoskeletal stiffness [Not Recovered/Not Resolved]
  - Pain [Not Recovered/Not Resolved]
  - Injection site hyperaesthesia [Unknown]
  - Drug ineffective [Unknown]
  - Injection site swelling [Unknown]
  - Injection site erythema [Unknown]
